FAERS Safety Report 17092884 (Version 1)
Quarter: 2019Q4

REPORT INFORMATION
  Report Type: Spontaneous
  Country: JP (occurrence: JP)
  Receive Date: 20191129
  Receipt Date: 20191129
  Transmission Date: 20200122
  Serious: Yes (Hospitalization)
  Sender: FDA-Public Use
  Company Number: JP-ELI_LILLY_AND_COMPANY-JP201911011046

PATIENT
  Age: 58 Year
  Sex: Female

DRUGS (2)
  1. DULOXETINE HYDROCHLORIDE. [Suspect]
     Active Substance: DULOXETINE HYDROCHLORIDE
     Indication: SOMATIC SYMPTOM DISORDER
     Route: 048
  2. MIANSERIN [Concomitant]
     Active Substance: MIANSERIN

REACTIONS (6)
  - Dysarthria [Recovering/Resolving]
  - Blood creatine phosphokinase increased [Recovering/Resolving]
  - Serotonin syndrome [Recovering/Resolving]
  - Salivary hypersecretion [Recovering/Resolving]
  - Gait disturbance [Recovering/Resolving]
  - Stress cardiomyopathy [Recovering/Resolving]
